FAERS Safety Report 5205859-6 (Version None)
Quarter: 2007Q1

REPORT INFORMATION
  Report Type: 
  Country: None (occurrence: None)
  Receive Date: 20070111
  Receipt Date: 20070104
  Transmission Date: 20070707
  Serious: Yes (Hospitalization)
  Sender: FDA-Public Use
  Company Number: US-AVENTIS-200710168GDDC

PATIENT
  Age: 46 Year
  Sex: Female

DRUGS (12)
  1. DOCETAXEL [Suspect]
     Route: 042
     Dates: start: 20040205, end: 20040205
  2. CARBOPLATIN [Suspect]
     Route: 042
     Dates: start: 20040205, end: 20040205
  3. CODE UNBROKEN [Suspect]
     Route: 048
     Dates: start: 20040101
  4. MOVICOLON [Concomitant]
  5. METFORMIN HCL [Concomitant]
     Dates: end: 20040215
  6. GLICLAZIDE [Concomitant]
     Dates: end: 20040215
  7. DOMPERIDONE [Concomitant]
     Dates: start: 20040124
  8. TRAMADOL HCL [Concomitant]
     Dates: end: 20040126
  9. ACETAMINOPHEN [Concomitant]
  10. INSULATARD                         /00646002/ [Concomitant]
     Dates: end: 20040221
  11. PANTOPRAZOLE SODIUM [Concomitant]
     Dates: start: 20040203
  12. TEMAZEPAM [Concomitant]

REACTIONS (4)
  - ASCITES [None]
  - DIARRHOEA [None]
  - HYPERGLYCAEMIA [None]
  - VOMITING [None]
